FAERS Safety Report 6646140-8 (Version None)
Quarter: 2010Q1

REPORT INFORMATION
  Report Type: 
  Country: None (occurrence: None)
  Receive Date: 20100322
  Receipt Date: 20100322
  Transmission Date: 20100710
  Serious: Yes (Other)
  Sender: FDA-Public Use
  Company Number: None

PATIENT
  Age: 70 Year
  Sex: Male
  Weight: 79.3795 kg

DRUGS (1)
  1. CLOBETASOL PROPIONATE (EMOLLIENT) [Suspect]
     Dosage: .05% 2 TIMES DAILY 2 WKS
     Dates: start: 20100126

REACTIONS (2)
  - FOLLICULITIS [None]
  - PRURITUS [None]
